FAERS Safety Report 24112030 (Version 2)
Quarter: 2025Q1

REPORT INFORMATION
  Report Type: Spontaneous
  Country: CA (occurrence: CA)
  Receive Date: 20240719
  Receipt Date: 20250127
  Transmission Date: 20250408
  Serious: Yes (Death, Life-Threatening, Hospitalization, Disabling, Congenital Anomaly, Other)
  Sender: Haleon PLC
  Company Number: CA-002147023-NVSC2024CA009468

PATIENT
  Age: 40 Year
  Sex: Female
  Weight: 96 kg

DRUGS (261)
  1. DICLOFENAC SODIUM [Suspect]
     Active Substance: DICLOFENAC SODIUM
     Indication: Product used for unknown indication
     Route: 065
  2. DICLOFENAC SODIUM [Suspect]
     Active Substance: DICLOFENAC SODIUM
     Route: 065
  3. DICLOFENAC SODIUM [Suspect]
     Active Substance: DICLOFENAC SODIUM
     Route: 058
  4. DICLOFENAC SODIUM [Suspect]
     Active Substance: DICLOFENAC SODIUM
     Route: 065
  5. PHENYLEPHRINE HYDROCHLORIDE [Suspect]
     Active Substance: PHENYLEPHRINE HYDROCHLORIDE
     Indication: Rheumatoid arthritis
     Route: 065
  6. TOPIRAMATE [Suspect]
     Active Substance: TOPIRAMATE
     Indication: Migraine
     Dosage: 3 MG, QD
     Route: 065
  7. TOPIRAMATE [Suspect]
     Active Substance: TOPIRAMATE
     Dosage: 25 MG, QD
     Route: 065
  8. TOPIRAMATE [Suspect]
     Active Substance: TOPIRAMATE
     Dosage: 25 MG, QD
     Route: 065
  9. LEFLUNOMIDE [Suspect]
     Active Substance: LEFLUNOMIDE
     Indication: Rheumatoid arthritis
     Dosage: 10 MG, QD
     Route: 048
  10. LEFLUNOMIDE [Suspect]
     Active Substance: LEFLUNOMIDE
     Dosage: 20 MG, QD
     Route: 065
  11. LEFLUNOMIDE [Suspect]
     Active Substance: LEFLUNOMIDE
     Dosage: 10 MG, QD
     Route: 065
  12. LEFLUNOMIDE [Suspect]
     Active Substance: LEFLUNOMIDE
     Route: 048
  13. LEFLUNOMIDE [Suspect]
     Active Substance: LEFLUNOMIDE
     Dosage: 20 MG, QD
     Route: 065
  14. LEFLUNOMIDE [Suspect]
     Active Substance: LEFLUNOMIDE
     Route: 065
  15. ADALIMUMAB [Suspect]
     Active Substance: ADALIMUMAB
     Indication: Rheumatoid arthritis
     Route: 058
  16. ADALIMUMAB [Suspect]
     Active Substance: ADALIMUMAB
     Route: 058
  17. ADALIMUMAB [Suspect]
     Active Substance: ADALIMUMAB
     Route: 058
  18. OXYCODONE [Suspect]
     Active Substance: OXYCODONE
     Indication: Product used for unknown indication
     Route: 065
  19. DICLOFENAC DIETHYLAMINE [Suspect]
     Active Substance: DICLOFENAC DIETHYLAMINE
     Indication: Product used for unknown indication
     Route: 065
  20. AIMOVIG [Suspect]
     Active Substance: ERENUMAB-AOOE
     Indication: Migraine
     Route: 065
  21. AIMOVIG [Suspect]
     Active Substance: ERENUMAB-AOOE
     Route: 065
  22. AIMOVIG [Suspect]
     Active Substance: ERENUMAB-AOOE
     Route: 065
  23. Desogestrel; Ethinylestradiol [Concomitant]
     Indication: Product used for unknown indication
     Route: 065
  24. CANDESARTAN [Suspect]
     Active Substance: CANDESARTAN
     Indication: Migraine
     Route: 048
  25. CANDESARTAN [Suspect]
     Active Substance: CANDESARTAN
     Route: 048
  26. CANDESARTAN [Suspect]
     Active Substance: CANDESARTAN
     Route: 065
  27. COSENTYX [Suspect]
     Active Substance: SECUKINUMAB
     Indication: Psoriatic arthropathy
     Route: 065
  28. COSENTYX [Suspect]
     Active Substance: SECUKINUMAB
     Indication: Rheumatoid arthritis
     Route: 065
  29. COSENTYX [Suspect]
     Active Substance: SECUKINUMAB
     Route: 065
  30. METHOTREXATE [Suspect]
     Active Substance: METHOTREXATE
     Indication: Rheumatoid arthritis
     Route: 048
  31. METHOTREXATE [Suspect]
     Active Substance: METHOTREXATE
     Dosage: 25 MG, WE (25 MG, QW)
     Route: 048
  32. METHOTREXATE [Suspect]
     Active Substance: METHOTREXATE
     Route: 048
  33. METHOTREXATE [Suspect]
     Active Substance: METHOTREXATE
     Route: 048
  34. METHOTREXATE [Suspect]
     Active Substance: METHOTREXATE
     Route: 048
  35. METHOTREXATE [Suspect]
     Active Substance: METHOTREXATE
     Dosage: 25 MG, WE (25 MG, QW)
     Route: 013
  36. METHOTREXATE [Suspect]
     Active Substance: METHOTREXATE
     Route: 058
  37. METHOTREXATE [Suspect]
     Active Substance: METHOTREXATE
     Dosage: 25 MG, WE (25 MG, QW)
     Route: 065
  38. METHOTREXATE [Suspect]
     Active Substance: METHOTREXATE
     Dosage: 25 MG, WE (25 MG, QW)
     Route: 048
  39. METHOTREXATE [Suspect]
     Active Substance: METHOTREXATE
     Dosage: 20 MG, WE (20 MG, QW)
     Route: 048
  40. METHOTREXATE [Suspect]
     Active Substance: METHOTREXATE
     Route: 065
  41. METHOTREXATE [Suspect]
     Active Substance: METHOTREXATE
     Dosage: 20 MG, QD
     Route: 048
  42. METHOTREXATE [Suspect]
     Active Substance: METHOTREXATE
     Route: 065
  43. METHOTREXATE [Suspect]
     Active Substance: METHOTREXATE
     Route: 013
  44. METHOTREXATE [Suspect]
     Active Substance: METHOTREXATE
     Dosage: 25 MG, WE (25 MG, QW)
     Route: 013
  45. METHOTREXATE [Suspect]
     Active Substance: METHOTREXATE
     Dosage: 50 MG, QD
     Route: 048
  46. METHOTREXATE [Suspect]
     Active Substance: METHOTREXATE
     Route: 016
  47. METHOTREXATE [Suspect]
     Active Substance: METHOTREXATE
     Route: 048
  48. METHOTREXATE [Suspect]
     Active Substance: METHOTREXATE
     Dosage: 25 MG, QD
     Route: 048
  49. METHOTREXATE [Suspect]
     Active Substance: METHOTREXATE
     Dosage: 150 MG, WE (150 MG, QW)
     Route: 058
  50. RITUXAN [Suspect]
     Active Substance: RITUXIMAB
     Indication: Rheumatoid arthritis
     Dosage: 365 MG, QD
     Route: 065
  51. RITUXAN [Suspect]
     Active Substance: RITUXIMAB
     Dosage: 2000 MG, QD
     Route: 065
  52. RITUXAN [Suspect]
     Active Substance: RITUXIMAB
     Route: 016
  53. RITUXAN [Suspect]
     Active Substance: RITUXIMAB
     Route: 043
  54. RITUXAN [Suspect]
     Active Substance: RITUXIMAB
     Dosage: 2000 MG, QD
     Route: 065
  55. RITUXAN [Suspect]
     Active Substance: RITUXIMAB
     Dosage: 2 G, QD
     Route: 042
  56. RITUXAN [Suspect]
     Active Substance: RITUXIMAB
     Route: 065
  57. RITUXAN [Suspect]
     Active Substance: RITUXIMAB
     Route: 043
  58. RITUXAN [Suspect]
     Active Substance: RITUXIMAB
     Route: 042
  59. RITUXAN [Suspect]
     Active Substance: RITUXIMAB
     Dosage: 2 G, QD
     Route: 042
  60. RITUXAN [Suspect]
     Active Substance: RITUXIMAB
     Route: 016
  61. RITUXAN [Suspect]
     Active Substance: RITUXIMAB
     Dosage: UNK UNK, QD
     Route: 042
  62. RITUXAN [Suspect]
     Active Substance: RITUXIMAB
     Route: 058
  63. RITUXAN [Suspect]
     Active Substance: RITUXIMAB
     Dosage: 2000 MG, QD
     Route: 065
  64. RITUXAN [Suspect]
     Active Substance: RITUXIMAB
     Route: 016
  65. RITUXAN [Suspect]
     Active Substance: RITUXIMAB
     Route: 058
  66. RITUXAN [Suspect]
     Active Substance: RITUXIMAB
     Route: 042
  67. RITUXAN [Suspect]
     Active Substance: RITUXIMAB
     Dosage: 2000 MG, QD
     Route: 042
  68. NAPROXEN [Concomitant]
     Active Substance: NAPROXEN
     Indication: Product used for unknown indication
     Route: 065
  69. ERELZI [Suspect]
     Active Substance: ETANERCEPT-SZZS
     Indication: Rheumatoid arthritis
     Route: 065
  70. ERELZI [Suspect]
     Active Substance: ETANERCEPT-SZZS
     Route: 058
  71. ERELZI [Suspect]
     Active Substance: ETANERCEPT-SZZS
     Route: 065
  72. CHOLECALCIFEROL [Suspect]
     Active Substance: CHOLECALCIFEROL
     Indication: Product used for unknown indication
     Route: 065
  73. ACETAMINOPHEN [Suspect]
     Active Substance: ACETAMINOPHEN
     Indication: Rheumatoid arthritis
     Route: 065
  74. ACETAMINOPHEN [Suspect]
     Active Substance: ACETAMINOPHEN
     Route: 065
  75. ACETAMINOPHEN [Suspect]
     Active Substance: ACETAMINOPHEN
     Route: 065
  76. ACETAMINOPHEN [Suspect]
     Active Substance: ACETAMINOPHEN
     Route: 065
  77. ACETAMINOPHEN [Suspect]
     Active Substance: ACETAMINOPHEN
     Route: 065
  78. ACETAMINOPHEN [Suspect]
     Active Substance: ACETAMINOPHEN
     Route: 065
  79. CHLORHEXIDINE GLUCONATE [Suspect]
     Active Substance: CHLORHEXIDINE GLUCONATE
     Indication: Product used for unknown indication
     Route: 065
  80. CHLORHEXIDINE GLUCONATE [Suspect]
     Active Substance: CHLORHEXIDINE GLUCONATE
     Route: 065
  81. CHLORHEXIDINE GLUCONATE [Suspect]
     Active Substance: CHLORHEXIDINE GLUCONATE
     Route: 065
  82. VITAMIN D3 [Suspect]
     Active Substance: CHOLECALCIFEROL
     Indication: Product used for unknown indication
     Route: 065
  83. ACTEMRA [Suspect]
     Active Substance: TOCILIZUMAB
     Indication: Rheumatoid arthritis
     Route: 065
  84. ACTEMRA [Suspect]
     Active Substance: TOCILIZUMAB
     Route: 058
  85. ACTEMRA [Suspect]
     Active Substance: TOCILIZUMAB
     Route: 065
  86. ACTEMRA [Suspect]
     Active Substance: TOCILIZUMAB
     Route: 058
  87. ACTEMRA [Suspect]
     Active Substance: TOCILIZUMAB
     Route: 058
  88. ACTEMRA [Suspect]
     Active Substance: TOCILIZUMAB
     Route: 058
  89. ACTEMRA [Suspect]
     Active Substance: TOCILIZUMAB
     Route: 058
  90. ACTEMRA [Suspect]
     Active Substance: TOCILIZUMAB
     Route: 058
  91. ACTEMRA [Suspect]
     Active Substance: TOCILIZUMAB
     Route: 016
  92. ACTEMRA [Suspect]
     Active Substance: TOCILIZUMAB
     Route: 058
  93. ACTEMRA [Suspect]
     Active Substance: TOCILIZUMAB
     Route: 065
  94. ACTEMRA [Suspect]
     Active Substance: TOCILIZUMAB
     Route: 065
  95. ACTEMRA [Suspect]
     Active Substance: TOCILIZUMAB
     Route: 058
  96. ACTEMRA [Suspect]
     Active Substance: TOCILIZUMAB
     Route: 065
  97. ACTEMRA [Suspect]
     Active Substance: TOCILIZUMAB
     Route: 065
  98. ACTEMRA [Suspect]
     Active Substance: TOCILIZUMAB
     Route: 061
  99. ACTEMRA [Suspect]
     Active Substance: TOCILIZUMAB
     Route: 065
  100. ACTEMRA [Suspect]
     Active Substance: TOCILIZUMAB
     Route: 065
  101. ALENDRONIC ACID [Suspect]
     Active Substance: ALENDRONIC ACID
     Indication: Rheumatoid arthritis
     Route: 065
  102. ALENDRONIC ACID [Suspect]
     Active Substance: ALENDRONIC ACID
     Route: 065
  103. ALENDRONIC ACID [Suspect]
     Active Substance: ALENDRONIC ACID
     Route: 016
  104. ALENDRONIC ACID [Suspect]
     Active Substance: ALENDRONIC ACID
     Route: 065
  105. ALENDRONIC ACID [Suspect]
     Active Substance: ALENDRONIC ACID
     Route: 048
  106. ALENDRONIC ACID [Suspect]
     Active Substance: ALENDRONIC ACID
     Route: 065
  107. ALENDRONIC ACID [Suspect]
     Active Substance: ALENDRONIC ACID
     Route: 048
  108. ALENDRONIC ACID [Suspect]
     Active Substance: ALENDRONIC ACID
     Route: 048
  109. LEFLUNOMIDE [Suspect]
     Active Substance: LEFLUNOMIDE
     Indication: Rheumatoid arthritis
     Route: 065
  110. LEFLUNOMIDE [Suspect]
     Active Substance: LEFLUNOMIDE
     Route: 048
  111. LEFLUNOMIDE [Suspect]
     Active Substance: LEFLUNOMIDE
     Route: 065
  112. PREDNISONE [Suspect]
     Active Substance: PREDNISONE
     Indication: Rheumatoid arthritis
     Route: 048
  113. PREDNISONE [Suspect]
     Active Substance: PREDNISONE
     Route: 065
  114. PREDNISONE [Suspect]
     Active Substance: PREDNISONE
     Route: 048
  115. PREDNISONE [Suspect]
     Active Substance: PREDNISONE
     Route: 048
  116. PREDNISONE [Suspect]
     Active Substance: PREDNISONE
     Route: 065
  117. PREDNISONE [Suspect]
     Active Substance: PREDNISONE
     Route: 048
  118. PREDNISONE [Suspect]
     Active Substance: PREDNISONE
     Route: 048
  119. PREDNISONE [Suspect]
     Active Substance: PREDNISONE
     Route: 065
  120. PREDNISONE [Suspect]
     Active Substance: PREDNISONE
     Route: 065
  121. APREMILAST [Suspect]
     Active Substance: APREMILAST
     Indication: Rheumatoid arthritis
     Route: 065
  122. APREMILAST [Suspect]
     Active Substance: APREMILAST
     Route: 065
  123. APREMILAST [Suspect]
     Active Substance: APREMILAST
     Route: 065
  124. ARAVA [Suspect]
     Active Substance: LEFLUNOMIDE
     Indication: Rheumatoid arthritis
     Route: 065
  125. ARAVA [Suspect]
     Active Substance: LEFLUNOMIDE
     Route: 048
  126. ARAVA [Suspect]
     Active Substance: LEFLUNOMIDE
     Route: 048
  127. ARAVA [Suspect]
     Active Substance: LEFLUNOMIDE
     Route: 065
  128. ARAVA [Suspect]
     Active Substance: LEFLUNOMIDE
     Route: 065
  129. ARAVA [Suspect]
     Active Substance: LEFLUNOMIDE
     Route: 048
  130. ARAVA [Suspect]
     Active Substance: LEFLUNOMIDE
     Route: 048
  131. AZATHIOPRINE SODIUM [Suspect]
     Active Substance: AZATHIOPRINE SODIUM
     Indication: Product used for unknown indication
     Route: 065
  132. BERINERT [Suspect]
     Active Substance: HUMAN C1-ESTERASE INHIBITOR
     Indication: Product used for unknown indication
     Route: 065
  133. BOTULINUM TOXIN TYPE A [Suspect]
     Active Substance: BOTULINUM TOXIN TYPE A
     Indication: Product used for unknown indication
     Route: 065
  134. BUTRANS [Suspect]
     Active Substance: BUPRENORPHINE
     Indication: Product used for unknown indication
     Route: 065
  135. CELEBREX [Suspect]
     Active Substance: CELECOXIB
     Indication: Product used for unknown indication
     Route: 065
  136. CELEBREX [Suspect]
     Active Substance: CELECOXIB
     Route: 048
  137. CERTOLIZUMAB PEGOL [Suspect]
     Active Substance: CERTOLIZUMAB PEGOL
     Indication: Product used for unknown indication
     Route: 058
  138. CERTOLIZUMAB PEGOL [Suspect]
     Active Substance: CERTOLIZUMAB PEGOL
     Route: 065
  139. CERTOLIZUMAB PEGOL [Suspect]
     Active Substance: CERTOLIZUMAB PEGOL
     Route: 058
  140. CERTOLIZUMAB PEGOL [Suspect]
     Active Substance: CERTOLIZUMAB PEGOL
     Route: 065
  141. CERTOLIZUMAB PEGOL [Suspect]
     Active Substance: CERTOLIZUMAB PEGOL
     Route: 058
  142. CERTOLIZUMAB PEGOL [Suspect]
     Active Substance: CERTOLIZUMAB PEGOL
     Route: 065
  143. DESOXIMETASONE [Suspect]
     Active Substance: DESOXIMETASONE
     Indication: Rheumatoid arthritis
     Route: 065
  144. DESOXIMETASONE [Suspect]
     Active Substance: DESOXIMETASONE
     Route: 048
  145. DESOXIMETASONE [Suspect]
     Active Substance: DESOXIMETASONE
     Route: 048
  146. DESOXIMETASONE [Suspect]
     Active Substance: DESOXIMETASONE
     Route: 065
  147. DESOXIMETASONE [Suspect]
     Active Substance: DESOXIMETASONE
     Route: 065
  148. DESOXIMETASONE [Suspect]
     Active Substance: DESOXIMETASONE
     Route: 065
  149. DESOXIMETASONE [Suspect]
     Active Substance: DESOXIMETASONE
     Route: 058
  150. DESOXIMETASONE [Suspect]
     Active Substance: DESOXIMETASONE
     Route: 065
  151. DESOXIMETASONE [Suspect]
     Active Substance: DESOXIMETASONE
     Route: 058
  152. DOMPERIDONE MALEATE [Suspect]
     Active Substance: DOMPERIDONE MALEATE
     Indication: Product used for unknown indication
     Route: 065
  153. ENBREL [Suspect]
     Active Substance: ETANERCEPT
     Indication: Rheumatoid arthritis
     Route: 065
  154. ENBREL [Suspect]
     Active Substance: ETANERCEPT
     Route: 058
  155. ENBREL [Suspect]
     Active Substance: ETANERCEPT
     Route: 058
  156. ENBREL [Suspect]
     Active Substance: ETANERCEPT
     Route: 065
  157. ENBREL [Suspect]
     Active Substance: ETANERCEPT
     Route: 058
  158. ENBREL [Suspect]
     Active Substance: ETANERCEPT
     Route: 058
  159. ENBREL [Suspect]
     Active Substance: ETANERCEPT
     Route: 058
  160. ENBREL [Suspect]
     Active Substance: ETANERCEPT
     Route: 065
  161. ENBREL [Suspect]
     Active Substance: ETANERCEPT
     Route: 065
  162. ENBREL [Suspect]
     Active Substance: ETANERCEPT
     Route: 065
  163. ENBREL [Suspect]
     Active Substance: ETANERCEPT
     Route: 058
  164. ENBREL [Suspect]
     Active Substance: ETANERCEPT
     Route: 058
  165. ENBREL [Suspect]
     Active Substance: ETANERCEPT
     Route: 058
  166. ENBREL [Suspect]
     Active Substance: ETANERCEPT
     Route: 065
  167. ENBREL [Suspect]
     Active Substance: ETANERCEPT
     Route: 065
  168. ENBREL [Suspect]
     Active Substance: ETANERCEPT
     Route: 058
  169. FLUMETHASONE [Suspect]
     Active Substance: FLUMETHASONE
     Indication: Product used for unknown indication
     Route: 065
  170. FLUMETHASONE PIVALATE [Suspect]
     Active Substance: FLUMETHASONE PIVALATE
     Indication: Product used for unknown indication
     Route: 058
  171. FLUMETHASONE PIVALATE [Suspect]
     Active Substance: FLUMETHASONE PIVALATE
     Route: 065
  172. FOLIC ACID [Suspect]
     Active Substance: FOLIC ACID
     Indication: Rheumatoid arthritis
     Route: 065
  173. FOLIC ACID [Suspect]
     Active Substance: FOLIC ACID
     Route: 065
  174. FOLIC ACID [Suspect]
     Active Substance: FOLIC ACID
     Route: 048
  175. FOLIC ACID [Suspect]
     Active Substance: FOLIC ACID
     Route: 065
  176. FOLIC ACID [Suspect]
     Active Substance: FOLIC ACID
     Route: 048
  177. FOLIC ACID [Suspect]
     Active Substance: FOLIC ACID
     Route: 065
  178. FOLIC ACID [Suspect]
     Active Substance: FOLIC ACID
     Route: 065
  179. FOLIC ACID [Suspect]
     Active Substance: FOLIC ACID
     Route: 065
  180. FOLIC ACID [Suspect]
     Active Substance: FOLIC ACID
     Route: 058
  181. FOLIC ACID [Suspect]
     Active Substance: FOLIC ACID
     Route: 048
  182. FOLIC ACID [Suspect]
     Active Substance: FOLIC ACID
     Route: 065
  183. FOLIC ACID [Suspect]
     Active Substance: FOLIC ACID
     Route: 065
  184. FOLIC ACID [Suspect]
     Active Substance: FOLIC ACID
     Route: 048
  185. FOLIC ACID [Suspect]
     Active Substance: FOLIC ACID
     Route: 065
  186. FOSAMAX [Suspect]
     Active Substance: ALENDRONATE SODIUM
     Indication: Rheumatoid arthritis
     Route: 048
  187. FOSAMAX [Suspect]
     Active Substance: ALENDRONATE SODIUM
     Route: 016
  188. FOSAMAX [Suspect]
     Active Substance: ALENDRONATE SODIUM
     Route: 058
  189. FOSAMAX [Suspect]
     Active Substance: ALENDRONATE SODIUM
     Route: 065
  190. FOSAMAX [Suspect]
     Active Substance: ALENDRONATE SODIUM
     Route: 065
  191. COSENTYX [Concomitant]
     Active Substance: SECUKINUMAB
     Indication: Product used for unknown indication
  192. CETIRIZINE HYDROCHLORIDE [Suspect]
     Active Substance: CETIRIZINE HYDROCHLORIDE
     Indication: Rheumatoid arthritis
     Route: 048
  193. CETIRIZINE HYDROCHLORIDE [Suspect]
     Active Substance: CETIRIZINE HYDROCHLORIDE
     Route: 065
  194. CETIRIZINE HYDROCHLORIDE [Suspect]
     Active Substance: CETIRIZINE HYDROCHLORIDE
     Route: 048
  195. CETIRIZINE HYDROCHLORIDE [Suspect]
     Active Substance: CETIRIZINE HYDROCHLORIDE
     Route: 048
  196. CETIRIZINE HYDROCHLORIDE [Suspect]
     Active Substance: CETIRIZINE HYDROCHLORIDE
     Route: 065
  197. CETIRIZINE HYDROCHLORIDE [Suspect]
     Active Substance: CETIRIZINE HYDROCHLORIDE
     Route: 016
  198. CETIRIZINE HYDROCHLORIDE [Suspect]
     Active Substance: CETIRIZINE HYDROCHLORIDE
     Route: 065
  199. CETIRIZINE HYDROCHLORIDE [Suspect]
     Active Substance: CETIRIZINE HYDROCHLORIDE
     Route: 065
  200. CETIRIZINE HYDROCHLORIDE [Suspect]
     Active Substance: CETIRIZINE HYDROCHLORIDE
     Route: 065
  201. CETIRIZINE HYDROCHLORIDE [Suspect]
     Active Substance: CETIRIZINE HYDROCHLORIDE
     Route: 065
  202. CETIRIZINE HYDROCHLORIDE [Suspect]
     Active Substance: CETIRIZINE HYDROCHLORIDE
     Route: 065
  203. CETIRIZINE HYDROCHLORIDE [Suspect]
     Active Substance: CETIRIZINE HYDROCHLORIDE
     Route: 065
  204. CETIRIZINE HYDROCHLORIDE [Suspect]
     Active Substance: CETIRIZINE HYDROCHLORIDE
     Route: 048
  205. CETIRIZINE HYDROCHLORIDE [Suspect]
     Active Substance: CETIRIZINE HYDROCHLORIDE
     Route: 065
  206. CETIRIZINE HYDROCHLORIDE [Suspect]
     Active Substance: CETIRIZINE HYDROCHLORIDE
     Route: 065
  207. CETIRIZINE HYDROCHLORIDE [Suspect]
     Active Substance: CETIRIZINE HYDROCHLORIDE
     Route: 065
  208. CETIRIZINE HYDROCHLORIDE [Suspect]
     Active Substance: CETIRIZINE HYDROCHLORIDE
     Route: 065
  209. CETIRIZINE HYDROCHLORIDE [Suspect]
     Active Substance: CETIRIZINE HYDROCHLORIDE
     Route: 065
  210. CETIRIZINE HYDROCHLORIDE [Suspect]
     Active Substance: CETIRIZINE HYDROCHLORIDE
     Route: 065
  211. CETIRIZINE HYDROCHLORIDE [Suspect]
     Active Substance: CETIRIZINE HYDROCHLORIDE
     Route: 065
  212. CETIRIZINE HYDROCHLORIDE [Suspect]
     Active Substance: CETIRIZINE HYDROCHLORIDE
     Route: 065
  213. CETIRIZINE HYDROCHLORIDE [Suspect]
     Active Substance: CETIRIZINE HYDROCHLORIDE
     Route: 065
  214. CETIRIZINE HYDROCHLORIDE [Suspect]
     Active Substance: CETIRIZINE HYDROCHLORIDE
     Route: 065
  215. CETIRIZINE HYDROCHLORIDE [Suspect]
     Active Substance: CETIRIZINE HYDROCHLORIDE
     Route: 065
  216. CETIRIZINE HYDROCHLORIDE [Suspect]
     Active Substance: CETIRIZINE HYDROCHLORIDE
     Route: 065
  217. CIMZIA [Suspect]
     Active Substance: CERTOLIZUMAB PEGOL
     Indication: Rheumatoid arthritis
     Route: 058
  218. CIMZIA [Suspect]
     Active Substance: CERTOLIZUMAB PEGOL
     Indication: Psoriasis
     Route: 058
  219. CIMZIA [Suspect]
     Active Substance: CERTOLIZUMAB PEGOL
     Route: 058
  220. CIMZIA [Suspect]
     Active Substance: CERTOLIZUMAB PEGOL
     Route: 065
  221. CIMZIA [Suspect]
     Active Substance: CERTOLIZUMAB PEGOL
     Route: 065
  222. CIMZIA [Suspect]
     Active Substance: CERTOLIZUMAB PEGOL
     Route: 058
  223. CIMZIA [Suspect]
     Active Substance: CERTOLIZUMAB PEGOL
     Route: 065
  224. CIMZIA [Suspect]
     Active Substance: CERTOLIZUMAB PEGOL
     Route: 058
  225. CIMZIA [Suspect]
     Active Substance: CERTOLIZUMAB PEGOL
     Route: 058
  226. SULFASALAZINE [Suspect]
     Active Substance: SULFASALAZINE
     Indication: Rheumatoid arthritis
     Route: 065
  227. SIMPONI [Suspect]
     Active Substance: GOLIMUMAB
     Indication: Rheumatoid arthritis
     Route: 058
  228. SIMPONI [Suspect]
     Active Substance: GOLIMUMAB
     Route: 058
  229. SIMPONI [Suspect]
     Active Substance: GOLIMUMAB
     Route: 058
  230. SIMPONI [Suspect]
     Active Substance: GOLIMUMAB
     Route: 058
  231. SIMPONI [Suspect]
     Active Substance: GOLIMUMAB
     Route: 058
  232. SIRUKUMAB [Suspect]
     Active Substance: SIRUKUMAB
     Indication: Product used for unknown indication
     Route: 065
  233. SIRUKUMAB [Suspect]
     Active Substance: SIRUKUMAB
     Route: 065
  234. GOLD SODIUM THIOMALATE [Suspect]
     Active Substance: GOLD SODIUM THIOMALATE
     Indication: Product used for unknown indication
     Route: 065
  235. GOLD SODIUM THIOMALATE [Suspect]
     Active Substance: GOLD SODIUM THIOMALATE
     Route: 065
  236. GOLD SODIUM THIOMALATE [Suspect]
     Active Substance: GOLD SODIUM THIOMALATE
     Route: 048
  237. SULFASALAZINE [Suspect]
     Active Substance: SULFASALAZINE
     Indication: Rheumatoid arthritis
     Route: 048
  238. SULFASALAZINE [Suspect]
     Active Substance: SULFASALAZINE
     Route: 048
  239. SULFASALAZINE [Suspect]
     Active Substance: SULFASALAZINE
     Route: 048
  240. SULFASALAZINE [Suspect]
     Active Substance: SULFASALAZINE
     Route: 048
  241. SULFASALAZINE [Suspect]
     Active Substance: SULFASALAZINE
     Route: 065
  242. SULFASALAZINE [Suspect]
     Active Substance: SULFASALAZINE
     Route: 058
  243. SULFASALAZINE [Suspect]
     Active Substance: SULFASALAZINE
     Route: 065
  244. SULFASALAZINE [Suspect]
     Active Substance: SULFASALAZINE
     Route: 058
  245. SULFASALAZINE [Suspect]
     Active Substance: SULFASALAZINE
     Route: 065
  246. SULFASALAZINE [Suspect]
     Active Substance: SULFASALAZINE
     Route: 065
  247. SULFASALAZINE [Suspect]
     Active Substance: SULFASALAZINE
     Route: 058
  248. SULFASALAZINE [Suspect]
     Active Substance: SULFASALAZINE
     Route: 058
  249. SULFASALAZINE [Suspect]
     Active Substance: SULFASALAZINE
     Route: 058
  250. SULFASALAZINE [Suspect]
     Active Substance: SULFASALAZINE
     Route: 058
  251. SULFASALAZINE [Suspect]
     Active Substance: SULFASALAZINE
     Route: 065
  252. SULFASALAZINE [Suspect]
     Active Substance: SULFASALAZINE
     Route: 048
  253. SULFASALAZINE [Suspect]
     Active Substance: SULFASALAZINE
     Route: 065
  254. SULFASALAZINE [Suspect]
     Active Substance: SULFASALAZINE
     Route: 065
  255. SULFASALAZINE [Suspect]
     Active Substance: SULFASALAZINE
     Route: 058
  256. SULFASALAZINE [Suspect]
     Active Substance: SULFASALAZINE
     Route: 065
  257. SULFASALAZINE [Suspect]
     Active Substance: SULFASALAZINE
     Route: 048
  258. SULFASALAZINE [Suspect]
     Active Substance: SULFASALAZINE
     Route: 016
  259. SULFASALAZINE [Suspect]
     Active Substance: SULFASALAZINE
     Route: 065
  260. SULFASALAZINE [Suspect]
     Active Substance: SULFASALAZINE
     Route: 048
  261. SULFASALAZINE [Suspect]
     Active Substance: SULFASALAZINE
     Route: 048

REACTIONS (35)
  - Pneumonia [Fatal]
  - Inflammation [Fatal]
  - Mobility decreased [Fatal]
  - Gastrointestinal disorder [Fatal]
  - Nail disorder [Fatal]
  - Hepatitis [Fatal]
  - Finger deformity [Fatal]
  - Gastrooesophageal reflux disease [Fatal]
  - Off label use [Fatal]
  - Condition aggravated [Fatal]
  - Product label confusion [Fatal]
  - Headache [Fatal]
  - Bursitis [Fatal]
  - Wheezing [Fatal]
  - Weight increased [Fatal]
  - Coeliac disease [Fatal]
  - Folliculitis [Fatal]
  - Grip strength decreased [Fatal]
  - Injury [Fatal]
  - Neck pain [Fatal]
  - Muscular weakness [Fatal]
  - Musculoskeletal stiffness [Fatal]
  - Abdominal distension [Fatal]
  - Adverse reaction [Fatal]
  - Gait inability [Fatal]
  - Intentional product use issue [Fatal]
  - Insomnia [Fatal]
  - Pain in extremity [Fatal]
  - Back injury [Fatal]
  - Dyspepsia [Fatal]
  - Hypoaesthesia [Fatal]
  - Wound infection [Fatal]
  - Liver function test increased [Fatal]
  - Malaise [Fatal]
  - Fall [Fatal]
